FAERS Safety Report 16991949 (Version 1)
Quarter: 2019Q4

REPORT INFORMATION
  Report Type: Spontaneous
  Country: US (occurrence: US)
  Receive Date: 20190922
  Receipt Date: 20190922
  Transmission Date: 20200122
  Serious: No
  Sender: FDA-Public Use
  Company Number: None

PATIENT
  Age: 73 Year
  Sex: Female

DRUGS (7)
  1. VITAMIN D3 1000U DAILY [Concomitant]
  2. ATORVASTATIN 40MG DAILY [Concomitant]
  3. METOPROLOL 25MG DAILY [Concomitant]
  4. CALCIUM_D DAILY [Concomitant]
  5. HUMIRA [Suspect]
     Active Substance: ADALIMUMAB
     Indication: RHEUMATOID ARTHRITIS
     Route: 058
     Dates: start: 20160803
  6. LEVOTHYROXINE 50MCG [Concomitant]
     Active Substance: LEVOTHYROXINE
  7. AMLODIPINE 5MG DAILY [Concomitant]

REACTIONS (2)
  - Rash [None]
  - Arthropod bite [None]

NARRATIVE: CASE EVENT DATE: 201905
